FAERS Safety Report 9972311 (Version 3)
Quarter: 2014Q3

REPORT INFORMATION
  Report Type: Spontaneous
  Country: IT (occurrence: None)
  Receive Date: 20140304
  Receipt Date: 20140709
  Transmission Date: 20150326
  Serious: Yes (Hospitalization)
  Sender: FDA-Public Use
  Company Number: 2014MPI00129

PATIENT
  Age: 43 Year
  Sex: Male

DRUGS (6)
  1. RUPATADINE FUMARATE (RUPATADINE FUMARATE) (UNKNOWN) (RUPATADINE FUMARATE) [Concomitant]
     Active Substance: RUPATADINE FUMARATE
  2. CHLORPHENAMINE (CHLORPHENAMINE) [Concomitant]
  3. LENOGRASTIM (LENOGRASTIM) [Concomitant]
     Active Substance: LENOGRASTIM
  4. ADCETRIS [Suspect]
     Active Substance: BRENTUXIMAB VEDOTIN
     Indication: HODGKIN^S DISEASE
     Route: 042
     Dates: start: 20131209, end: 20131209
  5. PARACETAMOL (PARACETAMOL) [Concomitant]
     Active Substance: ACETAMINOPHEN
  6. PEGFILGRASTIM (PEGFILGRASTIM) [Concomitant]
     Active Substance: PEGFILGRASTIM

REACTIONS (6)
  - Eyelid margin crusting [None]
  - Ophthalmic herpes zoster [None]
  - Photophobia [None]
  - Conjunctivitis viral [None]
  - Eyelid oedema [None]
  - Lacrimation increased [None]

NARRATIVE: CASE EVENT DATE: 20140102
